FAERS Safety Report 9352656 (Version 1)
Quarter: 2013Q2

REPORT INFORMATION
  Report Type: Spontaneous
  Country: US (occurrence: US)
  Receive Date: 20130618
  Receipt Date: 20130618
  Transmission Date: 20140414
  Serious: Yes (Hospitalization)
  Sender: FDA-Public Use
  Company Number: US-AMGEN-USASP2013041866

PATIENT
  Age: 66 Year
  Sex: Female

DRUGS (1)
  1. ENBREL [Suspect]
     Indication: RHEUMATOID ARTHRITIS
     Dosage: 50 MG, QWK
     Route: 065
     Dates: start: 19980315

REACTIONS (9)
  - Renal failure acute [Recovered/Resolved]
  - Haemorrhage [Recovered/Resolved]
  - Congenital cystic kidney disease [Recovered/Resolved]
  - Injection site bruising [Not Recovered/Not Resolved]
  - Induration [Not Recovered/Not Resolved]
  - Iron deficiency anaemia [Not Recovered/Not Resolved]
  - Hypotension [Recovered/Resolved]
  - Laboratory test abnormal [Not Recovered/Not Resolved]
  - Injection site pain [Not Recovered/Not Resolved]
